FAERS Safety Report 12738882 (Version 3)
Quarter: 2016Q4

REPORT INFORMATION
  Report Type: Report from Study
  Country: US (occurrence: US)
  Receive Date: 20160912
  Receipt Date: 20161220
  Transmission Date: 20170207
  Serious: Yes (Life-Threatening, Hospitalization, Other)
  Sender: FDA-Public Use
  Company Number: US-MALLINCKRODT-T201604168

PATIENT
  Age: 61 Year
  Sex: Male

DRUGS (3)
  1. REPOSITORY CORTICOTROPIN INJECTION [Suspect]
     Active Substance: CORTICOTROPIN
     Indication: SARCOIDOSIS
     Dosage: 68 UNITS EVERY 3 DAYS (72HRS)
     Route: 058
     Dates: start: 201405, end: 201608
  2. REPOSITORY CORTICOTROPIN INJECTION [Suspect]
     Active Substance: CORTICOTROPIN
     Dosage: 65 UNITS EVERY 3 DAYS (72HRS)
     Route: 058
     Dates: start: 20160903
  3. REPOSITORY CORTICOTROPIN INJECTION [Suspect]
     Active Substance: CORTICOTROPIN
     Dosage: 68 UNITS EVERY 3 DAYS
     Route: 058
     Dates: start: 20140701

REACTIONS (13)
  - Disease progression [Not Recovered/Not Resolved]
  - Localised infection [Recovering/Resolving]
  - Therapy cessation [Recovered/Resolved]
  - Angina pectoris [Not Recovered/Not Resolved]
  - Cardiac function test abnormal [Not Recovered/Not Resolved]
  - Drug hypersensitivity [Unknown]
  - Ejection fraction decreased [Not Recovered/Not Resolved]
  - Muscle atrophy [Not Recovered/Not Resolved]
  - Coronary artery disease [Recovering/Resolving]
  - Asthenia [Not Recovered/Not Resolved]
  - Nephropathy toxic [Recovered/Resolved]
  - Unevaluable event [Recovered/Resolved]
  - Osteomyelitis [Recovering/Resolving]

NARRATIVE: CASE EVENT DATE: 201608
